FAERS Safety Report 7410690-7 (Version None)
Quarter: 2011Q2

REPORT INFORMATION
  Report Type: 
  Country: None (occurrence: None)
  Receive Date: 20110405
  Receipt Date: 20110325
  Transmission Date: 20111010
  Serious: Yes (Other)
  Sender: FDA-Public Use
  Company Number: 1000019594

PATIENT
  Age: 86 Year
  Sex: Male

DRUGS (4)
  1. MEMANTINE [Suspect]
     Indication: DEMENTIA ALZHEIMER'S TYPE
     Dosage: 15 MG (15 MG, 1 IN 1 D), ORAL
     Route: 048
     Dates: start: 20100613
  2. VENLAFAXINE HCL [Concomitant]
  3. ARICEPT [Concomitant]
  4. SEROQUEL [Suspect]
     Indication: HALLUCINATION
     Dosage: 12.5 MG

REACTIONS (4)
  - GAIT DISTURBANCE [None]
  - AGITATION [None]
  - DELIRIUM [None]
  - RESTLESSNESS [None]
